FAERS Safety Report 25213484 (Version 1)
Quarter: 2025Q2

REPORT INFORMATION
  Report Type: Spontaneous
  Country: US (occurrence: None)
  Receive Date: 20250417
  Receipt Date: 20250417
  Transmission Date: 20250716
  Serious: Yes (Hospitalization)
  Sender: FDA-CTU
  Company Number: None

PATIENT
  Age: 28 Year
  Sex: Female
  Weight: 83.25 kg

DRUGS (3)
  1. NIACINAMIDE\TIRZEPATIDE [Suspect]
     Active Substance: NIACINAMIDE\TIRZEPATIDE
     Indication: Weight decreased
     Dosage: OTHER FREQUENCY : ONCE PER WEEK;?
     Route: 058
     Dates: start: 20241212
  2. prozac 40mg once po qd [Concomitant]
  3. buspirone three times daily by mouth [Concomitant]

REACTIONS (2)
  - Chest pain [None]
  - Syncope [None]

NARRATIVE: CASE EVENT DATE: 20250324
